FAERS Safety Report 25041931 (Version 2)
Quarter: 2025Q2

REPORT INFORMATION
  Report Type: Report from Study
  Country: CA (occurrence: CA)
  Receive Date: 20250305
  Receipt Date: 20250501
  Transmission Date: 20250717
  Serious: Yes (Hospitalization)
  Sender: CHIESI
  Company Number: CA-CHIESI-2025CHF00290

PATIENT
  Age: 48 Year
  Sex: Female
  Weight: 56 kg

DRUGS (3)
  1. DEFERIPRONE [Suspect]
     Active Substance: DEFERIPRONE
     Indication: Sickle cell disease
     Dosage: 500 MILLIGRAM, TID
     Route: 048
  2. DEFERIPRONE [Suspect]
     Active Substance: DEFERIPRONE
     Dosage: 1000 MILLIGRAM, TID
     Route: 048
  3. DEFERIPRONE [Suspect]
     Active Substance: DEFERIPRONE
     Dosage: 2000 MILLIGRAM, BID
     Route: 048
     Dates: start: 20241124

REACTIONS (5)
  - Infection [Unknown]
  - Peritoneal effluent abnormal [Unknown]
  - Arthropathy [Unknown]
  - Off label use [Unknown]
  - Off label use [Unknown]

NARRATIVE: CASE EVENT DATE: 20241124
